FAERS Safety Report 13376633 (Version 1)
Quarter: 2017Q1

REPORT INFORMATION
  Report Type: Spontaneous
  Country: IN (occurrence: IN)
  Receive Date: 20170328
  Receipt Date: 20170328
  Transmission Date: 20170429
  Serious: Yes (Life-Threatening, Hospitalization, Other)
  Sender: FDA-Public Use
  Company Number: IN-TORRENT-00001042

PATIENT
  Age: 46 Year
  Sex: Female
  Weight: 70 kg

DRUGS (13)
  1. FENTANYL. [Concomitant]
     Active Substance: FENTANYL
  2. CEFUROXIME. [Suspect]
     Active Substance: CEFUROXIME
  3. OXYGEN. [Concomitant]
     Active Substance: OXYGEN
  4. NICARDIPINE [Interacting]
     Active Substance: NICARDIPINE
  5. LEVOTHYROXINE SODIUM. [Concomitant]
     Active Substance: LEVOTHYROXINE SODIUM
  6. ATENOLOL. [Interacting]
     Active Substance: ATENOLOL
  7. PRAZOSIN [Interacting]
     Active Substance: PRAZOSIN
  8. LOSARTAN. [Suspect]
     Active Substance: LOSARTAN
  9. PROPOFOL. [Concomitant]
     Active Substance: PROPOFOL
  10. NITROUS OXIDE. [Concomitant]
     Active Substance: NITROUS OXIDE
  11. MIDAZOLAM [Concomitant]
     Active Substance: MIDAZOLAM HYDROCHLORIDE
  12. VECURONIUM [Concomitant]
     Active Substance: VECURONIUM BROMIDE
  13. ISOFLURANE. [Concomitant]
     Active Substance: ISOFLURANE

REACTIONS (3)
  - Drug interaction [Recovered/Resolved]
  - Anaphylactic shock [Recovered/Resolved]
  - Bradycardia [Recovered/Resolved]
